FAERS Safety Report 10830299 (Version 1)
Quarter: 2015Q1

REPORT INFORMATION
  Report Type: Report from Study
  Country: US (occurrence: US)
  Receive Date: 20150219
  Receipt Date: 20150219
  Transmission Date: 20150721
  Serious: Yes (Hospitalization)
  Sender: FDA-Public Use
  Company Number: US-SA-2014SA131236

PATIENT
  Age: 61 Year
  Sex: Female

DRUGS (5)
  1. LANTUS SOLOSTAR [Suspect]
     Active Substance: INSULIN GLARGINE
     Indication: TYPE 2 DIABETES MELLITUS
     Dosage: TREATMENT START DATE: 3 YEARS OR MORE. DOSE:86 UNIT(S)
     Route: 065
  2. NOVOLIN R [Concomitant]
     Active Substance: INSULIN HUMAN
  3. LANTUS SOLOSTAR [Suspect]
     Active Substance: INSULIN GLARGINE
     Indication: TYPE 2 DIABETES MELLITUS
     Dosage: TREATMENT START DATE: 3 YEARS OR MORE. DOSE:56 UNIT(S)
     Route: 065
  4. SOLOSTAR [Concomitant]
     Active Substance: DEVICE
  5. LANTUS SOLOSTAR [Suspect]
     Active Substance: INSULIN GLARGINE
     Indication: TYPE 2 DIABETES MELLITUS
     Dosage: TREATMENT START DATE: 3 YEARS OR MORE. DOSE:97 UNIT(S)
     Route: 065

REACTIONS (7)
  - Pneumonia [Not Recovered/Not Resolved]
  - Blood glucose increased [Not Recovered/Not Resolved]
  - Drug dose omission [Unknown]
  - Drug administration error [Unknown]
  - Cardiac disorder [Unknown]
  - Influenza [Not Recovered/Not Resolved]
  - Unevaluable event [Unknown]

NARRATIVE: CASE EVENT DATE: 201412
